FAERS Safety Report 5800305-3 (Version None)
Quarter: 2008Q3

REPORT INFORMATION
  Report Type: 
  Country: None (occurrence: None)
  Receive Date: 20080703
  Receipt Date: 20080627
  Transmission Date: 20090109
  Serious: Yes (Death, Hospitalization)
  Sender: FDA-Public Use
  Company Number: TH-AVENTIS-200815696GDDC

PATIENT
  Age: 67 Year
  Sex: Male

DRUGS (2)
  1. DOCETAXEL [Suspect]
     Route: 042
     Dates: start: 20080523, end: 20080523
  2. CARBOPLATIN [Suspect]
     Route: 042
     Dates: end: 20080523

REACTIONS (2)
  - DIARRHOEA [None]
  - RENAL FAILURE ACUTE [None]
